FAERS Safety Report 18869675 (Version 2)
Quarter: 2021Q1

REPORT INFORMATION
  Report Type: Spontaneous
  Country: JP (occurrence: JP)
  Receive Date: 20210209
  Receipt Date: 20210215
  Transmission Date: 20210420
  Serious: Yes (Other)
  Sender: FDA-Public Use
  Company Number: JP-PFIZER INC-2021101635

PATIENT
  Age: 40 Year
  Sex: Female

DRUGS (4)
  1. EFFEXOR [Suspect]
     Active Substance: VENLAFAXINE HYDROCHLORIDE
     Indication: DEPRESSION
     Dosage: 37.5 MG, DAILY
     Route: 048
  2. BREXPIPRAZOLE [Concomitant]
     Active Substance: BREXPIPRAZOLE
     Dosage: 2 MG, DAILY
  3. EFFEXOR [Suspect]
     Active Substance: VENLAFAXINE HYDROCHLORIDE
     Dosage: 150 MG, DAILY
     Route: 048
     Dates: end: 2021
  4. EFFEXOR [Suspect]
     Active Substance: VENLAFAXINE HYDROCHLORIDE
     Dosage: 75 MG, DAILY
     Route: 048

REACTIONS (3)
  - Mania [Recovered/Resolved]
  - Therapeutic response decreased [Unknown]
  - Bipolar disorder [Unknown]

NARRATIVE: CASE EVENT DATE: 2021
